FAERS Safety Report 14830266 (Version 3)
Quarter: 2018Q3

REPORT INFORMATION
  Report Type: Report from Study
  Country: FR (occurrence: FR)
  Receive Date: 20180430
  Receipt Date: 20180710
  Transmission Date: 20181010
  Serious: Yes (Hospitalization)
  Sender: FDA-Public Use
  Company Number: FR-BIOMARINAP-FR-2018-117856

PATIENT
  Age: 54 Year
  Sex: Female

DRUGS (3)
  1. CORTANCYL [Concomitant]
     Active Substance: PREDNISONE
     Dosage: UNK
     Dates: start: 20171110, end: 20180210
  2. CORTANCYL [Concomitant]
     Active Substance: PREDNISONE
     Indication: PAIN
     Dosage: UNK
     Dates: start: 20171103, end: 20171109
  3. VIMIZIM [Suspect]
     Active Substance: ELOSULFASE ALFA
     Indication: MUCOPOLYSACCHARIDOSIS IV
     Dosage: 2 MG/KG
     Route: 042
     Dates: start: 20171205

REACTIONS (1)
  - Urinary retention [Recovered/Resolved]

NARRATIVE: CASE EVENT DATE: 20171206
